FAERS Safety Report 17308895 (Version 1)
Quarter: 2020Q1

REPORT INFORMATION
  Report Type: Report from Study
  Country: DE (occurrence: DE)
  Receive Date: 20200123
  Receipt Date: 20200123
  Transmission Date: 20200409
  Serious: Yes (Death, Hospitalization, Other)
  Sender: FDA-Public Use
  Company Number: DE-GILEAD-2019-0402810

PATIENT
  Age: 77 Year
  Sex: Female
  Weight: 55 kg

DRUGS (13)
  1. XIFAXAN [Concomitant]
     Active Substance: RIFAXIMIN
     Dosage: UNK
  2. VOLTAREN ACTI [Concomitant]
     Active Substance: DICLOFENAC POTASSIUM
     Dosage: UNK
  3. IBEROGAST [Concomitant]
     Active Substance: HERBALS
     Dosage: UNK
     Dates: start: 20140710
  4. CARVEDILOL. [Concomitant]
     Active Substance: CARVEDILOL
     Dosage: UNK
  5. SIMEPREVIR [Suspect]
     Active Substance: SIMEPREVIR
     Indication: CHRONIC HEPATITIS C
     Dosage: 150 MG, QD
     Route: 048
     Dates: start: 20140702, end: 20140923
  6. NEURONTIN [Concomitant]
     Active Substance: GABAPENTIN
     Dosage: UNK UNK, TID
  7. PANTOPRAZOL +PHARMA [Concomitant]
     Dosage: 20 MG
  8. TRAMAL [Concomitant]
     Active Substance: TRAMADOL
     Dosage: UNK
  9. BONDIOL [Concomitant]
     Active Substance: ALFACALCIDOL
     Dosage: UNK
  10. SOFOSBUVIR [Suspect]
     Active Substance: SOFOSBUVIR
     Indication: CHRONIC HEPATITIS C
     Dosage: 400 MG, QD
     Route: 048
     Dates: start: 20140702, end: 20140923
  11. TORASEMID [Concomitant]
     Active Substance: TORSEMIDE
     Dosage: UNK
  12. TAVOR CAMPUS [Concomitant]
     Dosage: UNK
  13. SPIRONOLACTON [Concomitant]
     Active Substance: SPIRONOLACTONE
     Dosage: UNK

REACTIONS (2)
  - Hepatocellular carcinoma [Not Recovered/Not Resolved]
  - Death [Fatal]

NARRATIVE: CASE EVENT DATE: 20161103
